FAERS Safety Report 16728574 (Version 2)
Quarter: 2019Q3

REPORT INFORMATION
  Report Type: Spontaneous
  Country: US (occurrence: US)
  Receive Date: 20190822
  Receipt Date: 20190925
  Transmission Date: 20191005
  Serious: No
  Sender: FDA-Public Use
  Company Number: US-JNJFOC-20190821481

PATIENT
  Age: 4 Year
  Sex: Male
  Weight: 15.89 kg

DRUGS (1)
  1. CHILDRENS TYLENOL [Suspect]
     Active Substance: ACETAMINOPHEN
     Indication: PYREXIA
     Dosage: 7.5 ML FROM SYRINGE INTO A BOTTLE NIPPLE ONE TIME
     Route: 048
     Dates: start: 20190715

REACTIONS (3)
  - Diarrhoea [Recovered/Resolved]
  - Product contamination physical [Unknown]
  - Poor quality product administered [Unknown]

NARRATIVE: CASE EVENT DATE: 20190715
